FAERS Safety Report 16718526 (Version 1)
Quarter: 2019Q3

REPORT INFORMATION
  Report Type: Spontaneous
  Country: US (occurrence: US)
  Receive Date: 20190820
  Receipt Date: 20190820
  Transmission Date: 20191005
  Serious: No
  Sender: FDA-Public Use
  Company Number: US-TEVA-796755ACC

PATIENT
  Sex: Female
  Weight: 54 kg

DRUGS (4)
  1. CLOFAZIMINE [Suspect]
     Active Substance: CLOFAZIMINE
     Dosage: 100 MILLIGRAM DAILY; THE SUSPECT MEDICATION WAS TAKEN BY THE FATHER
     Dates: start: 20161024
  2. LINEZOLID. [Suspect]
     Active Substance: LINEZOLID
     Dosage: 600 MILLIGRAM DAILY; THE SUSPECT MEDICATION WAS TAKEN BY THE FATHER
     Dates: start: 20160705
  3. CYCLOSERINE. [Suspect]
     Active Substance: CYCLOSERINE
     Dosage: 750 MILLIGRAM DAILY; THE SUSPECT MEDICATION WAS TAKEN BY THE FATHER
     Dates: start: 20160620
  4. BEDAQUILINE [Suspect]
     Active Substance: BEDAQUILINE
     Dosage: THE SUSPECT MEDICATION WAS TAKEN BY THE FATHER
     Dates: start: 20160705, end: 20160805

REACTIONS (1)
  - Paternal exposure timing unspecified [Unknown]
